FAERS Safety Report 13585045 (Version 3)
Quarter: 2017Q3

REPORT INFORMATION
  Report Type: Spontaneous
  Country: KR (occurrence: KR)
  Receive Date: 20170526
  Receipt Date: 20170802
  Transmission Date: 20171127
  Serious: Yes (Other)
  Sender: FDA-Public Use
  Company Number: KR-009507513-1705KOR011239

PATIENT
  Age: 69 Year
  Sex: Male
  Weight: 54.2 kg

DRUGS (28)
  1. VINCRISTINE SULFATE. [Concomitant]
     Active Substance: VINCRISTINE SULFATE
     Dosage: 2 MG, ONCE, CYCLE 4
     Route: 042
     Dates: start: 20170411, end: 20170411
  2. PENIRAMIN [Concomitant]
     Indication: PREMEDICATION
     Dosage: 4 MG, ONCE
     Route: 042
     Dates: start: 20170222, end: 20170222
  3. PENIRAMIN [Concomitant]
     Dosage: 4 MG, ONCE
     Route: 042
     Dates: start: 20170411, end: 20170411
  4. MABTHERA [Concomitant]
     Active Substance: RITUXIMAB
     Dosage: 615 MG, ONCE, CYCLE 5
     Route: 042
     Dates: start: 20170502, end: 20170502
  5. PENIRAMIN [Concomitant]
     Dosage: 4 MG, ONCE
     Route: 042
     Dates: start: 20170502, end: 20170502
  6. ENDOXAN [Concomitant]
     Active Substance: CYCLOPHOSPHAMIDE
     Dosage: 1200 MG, ONCE, CYCLE 4
     Route: 042
     Dates: start: 20170411, end: 20170411
  7. ADRIAMYCIN [Concomitant]
     Active Substance: DOXORUBICIN HYDROCHLORIDE
     Dosage: 80 MG, ONCE, CYCLE 3
     Route: 042
     Dates: start: 20170316, end: 20170316
  8. ADRIAMYCIN [Concomitant]
     Active Substance: DOXORUBICIN HYDROCHLORIDE
     Dosage: 80 MG, ONCE, CYCEL 4
     Route: 042
     Dates: start: 20170411, end: 20170411
  9. VINCRISTINE SULFATE. [Concomitant]
     Active Substance: VINCRISTINE SULFATE
     Indication: CHEMOTHERAPY
     Dosage: 2 MG, ONCE, CYCLE 2
     Route: 042
     Dates: start: 20170222, end: 20170222
  10. URITOS [Concomitant]
     Active Substance: IMIDAFENACIN
     Indication: BENIGN PROSTATIC HYPERPLASIA
     Dosage: 1 TABLET, QD
     Route: 048
     Dates: start: 20170202
  11. EMEND (FOSAPREPITANT DIMEGLUMINE) [Suspect]
     Active Substance: FOSAPREPITANT DIMEGLUMINE
     Dosage: 150 MG, ONCE
     Route: 042
     Dates: start: 20170411, end: 20170411
  12. ENDOXAN [Concomitant]
     Active Substance: CYCLOPHOSPHAMIDE
     Dosage: 1200 MG, ONCE, CYCLE 5
     Route: 042
     Dates: start: 20170502, end: 20170502
  13. ADRIAMYCIN [Concomitant]
     Active Substance: DOXORUBICIN HYDROCHLORIDE
     Dosage: 80 MG, ONCE, CYCLE 5
     Route: 042
     Dates: start: 20170502, end: 20170502
  14. PANTOLINE TABLETS [Concomitant]
     Indication: PROPHYLAXIS AGAINST GASTROINTESTINAL ULCER
     Dosage: 20 MG, QD
     Route: 048
     Dates: start: 20170126
  15. CLAMOXYL [Concomitant]
     Active Substance: AMOXICILLIN\CLAVULANIC ACID
     Indication: INFECTION
     Dosage: 625 MG, TID
     Route: 048
     Dates: start: 20170216, end: 20170302
  16. MINIRIN [Concomitant]
     Active Substance: DESMOPRESSIN ACETATE
     Indication: BENIGN PROSTATIC HYPERPLASIA
     Dosage: 0.1 MG, QD
     Route: 048
     Dates: start: 20170202
  17. EMEND (FOSAPREPITANT DIMEGLUMINE) [Suspect]
     Active Substance: FOSAPREPITANT DIMEGLUMINE
     Indication: PROPHYLAXIS OF NAUSEA AND VOMITING
     Dosage: 150 MG, ONCE
     Route: 042
     Dates: start: 20170222, end: 20170222
  18. EMEND (FOSAPREPITANT DIMEGLUMINE) [Suspect]
     Active Substance: FOSAPREPITANT DIMEGLUMINE
     Dosage: 150 MG, ONCE
     Route: 042
     Dates: start: 20170316, end: 20170316
  19. ADRIAMYCIN [Concomitant]
     Active Substance: DOXORUBICIN HYDROCHLORIDE
     Indication: CHEMOTHERAPY
     Dosage: 80 MG, ONCE, CYCLE 2
     Route: 042
     Dates: start: 20170222, end: 20170222
  20. MABTHERA [Concomitant]
     Active Substance: RITUXIMAB
     Indication: CHEMOTHERAPY
     Dosage: 615 MG, ONCE, CYCLE 2
     Route: 042
     Dates: start: 20170222, end: 20170222
  21. MABTHERA [Concomitant]
     Active Substance: RITUXIMAB
     Dosage: 615 MG, ONCE, CYCLE 3
     Route: 042
     Dates: start: 20170316, end: 20170316
  22. MABTHERA [Concomitant]
     Active Substance: RITUXIMAB
     Dosage: 615 MG, ONCE, CYCLE 4
     Route: 042
     Dates: start: 20170411, end: 20170411
  23. VINCRISTINE SULFATE. [Concomitant]
     Active Substance: VINCRISTINE SULFATE
     Dosage: 2 MG, ONCE, CYCLE 5
     Route: 042
     Dates: start: 20170502, end: 20170502
  24. EMEND (FOSAPREPITANT DIMEGLUMINE) [Suspect]
     Active Substance: FOSAPREPITANT DIMEGLUMINE
     Dosage: 150 MG, ONCE
     Route: 042
     Dates: start: 20170502, end: 20170502
  25. ENDOXAN [Concomitant]
     Active Substance: CYCLOPHOSPHAMIDE
     Indication: CHEMOTHERAPY
     Dosage: 1200 MG, ONCE, CYCLE 2
     Route: 042
     Dates: start: 20170222, end: 20170222
  26. VINCRISTINE SULFATE. [Concomitant]
     Active Substance: VINCRISTINE SULFATE
     Dosage: 2 MG, ONCE, CYCLE 3
     Route: 042
     Dates: start: 20170316, end: 20170316
  27. PENIRAMIN [Concomitant]
     Dosage: 4 MG, ONCE
     Route: 042
     Dates: start: 20170316, end: 20170316
  28. ENDOXAN [Concomitant]
     Active Substance: CYCLOPHOSPHAMIDE
     Dosage: 1200 MG, ONCE, CYCLE 3
     Route: 042
     Dates: start: 20170316, end: 20170316

REACTIONS (1)
  - Venous thrombosis [Recovering/Resolving]

NARRATIVE: CASE EVENT DATE: 20170313
